FAERS Safety Report 7899879-0 (Version None)
Quarter: 2011Q4

REPORT INFORMATION
  Report Type: 
  Country: None (occurrence: None)
  Receive Date: 20111107
  Receipt Date: 20111004
  Transmission Date: 20120403
  Serious: No
  Sender: FDA-Public Use
  Company Number: US-AMGEN-USASP2011000461

PATIENT
  Sex: Female

DRUGS (1)
  1. ENBREL [Suspect]
     Indication: RHEUMATOID ARTHRITIS
     Dosage: 50 MG, QWK (ONCE IN FIVE DAYS)
     Dates: start: 20090701, end: 20100101

REACTIONS (3)
  - JOINT RANGE OF MOTION DECREASED [None]
  - INFLUENZA LIKE ILLNESS [None]
  - THERAPEUTIC RESPONSE DECREASED [None]
